FAERS Safety Report 11492916 (Version 3)
Quarter: 2016Q3

REPORT INFORMATION
  Report Type: Spontaneous
  Country: CA (occurrence: CA)
  Receive Date: 20150911
  Receipt Date: 20160919
  Transmission Date: 20161109
  Serious: Yes (Hospitalization)
  Sender: FDA-Public Use
  Company Number: CA-ROCHE-1632633

PATIENT
  Age: 51 Year
  Sex: Female

DRUGS (10)
  1. VENTOLIN [Concomitant]
     Active Substance: ALBUTEROL SULFATE
  2. UNIPHYL [Concomitant]
     Active Substance: THEOPHYLLINE ANHYDROUS
  3. ADVAIR HFA [Concomitant]
     Active Substance: FLUTICASONE PROPIONATE\SALMETEROL XINAFOATE
  4. NASONEX [Concomitant]
     Active Substance: MOMETASONE FUROATE
  5. XOLAIR [Suspect]
     Active Substance: OMALIZUMAB
     Indication: ASTHMA
     Route: 058
     Dates: start: 20131120
  6. SYMBICORT [Concomitant]
     Active Substance: BUDESONIDE\FORMOTEROL FUMARATE DIHYDRATE
  7. PANTOLOC [Concomitant]
     Active Substance: PANTOPRAZOLE SODIUM
  8. RHINOCORT AQUA [Concomitant]
     Active Substance: BUDESONIDE
  9. PREDNISONE. [Concomitant]
     Active Substance: PREDNISONE
  10. FLOVENT [Concomitant]
     Active Substance: FLUTICASONE PROPIONATE

REACTIONS (15)
  - Diarrhoea [Unknown]
  - Dizziness [Recovering/Resolving]
  - Mood swings [Unknown]
  - Sensitivity to weather change [Unknown]
  - Arthralgia [Recovering/Resolving]
  - Headache [Unknown]
  - Constipation [Unknown]
  - Peripheral swelling [Recovered/Resolved]
  - Anaphylactic shock [Unknown]
  - Hypersensitivity [Unknown]
  - Gait disturbance [Recovering/Resolving]
  - Fatigue [Recovering/Resolving]
  - Asthma [Unknown]
  - Asthenia [Unknown]
  - Allergic cough [Unknown]

NARRATIVE: CASE EVENT DATE: 20131121
